FAERS Safety Report 20160239 (Version 3)
Quarter: 2022Q1

REPORT INFORMATION
  Report Type: Spontaneous
  Country: ES (occurrence: ES)
  Receive Date: 20211208
  Receipt Date: 20220214
  Transmission Date: 20220423
  Serious: Yes (Other)
  Sender: FDA-Public Use
  Company Number: ES-ORGANON-O2112ESP000270

PATIENT
  Sex: Female

DRUGS (4)
  1. CARBIDOPA\LEVODOPA [Suspect]
     Active Substance: CARBIDOPA\LEVODOPA
     Indication: Parkinson^s disease
     Dosage: 4 TABLETS PER DAY
     Route: 048
     Dates: start: 2008
  2. CARBIDOPA\LEVODOPA [Suspect]
     Active Substance: CARBIDOPA\LEVODOPA
     Dosage: 2.5 TABLETS OF SINEMET PLUS A DAY, AT NIGHT SHE TAKES THE HALF TABLET
     Route: 048
     Dates: start: 2021
  3. RASAGILINE [Concomitant]
     Active Substance: RASAGILINE
     Dosage: UNK
  4. AZILECT [Concomitant]
     Active Substance: RASAGILINE MESYLATE
     Dosage: UNK

REACTIONS (10)
  - Drug dependence [Not Recovered/Not Resolved]
  - Cerebrovascular accident [Unknown]
  - Blood pressure fluctuation [Not Recovered/Not Resolved]
  - Toxicity to various agents [Unknown]
  - Drug ineffective [Unknown]
  - Feeling hot [Unknown]
  - Face oedema [Not Recovered/Not Resolved]
  - Anxiety [Unknown]
  - Headache [Unknown]
  - Wrong technique in product usage process [Unknown]

NARRATIVE: CASE EVENT DATE: 20191201
